FAERS Safety Report 21387402 (Version 2)
Quarter: 2022Q4

REPORT INFORMATION
  Report Type: Spontaneous
  Country: JP (occurrence: JP)
  Receive Date: 20220928
  Receipt Date: 20221017
  Transmission Date: 20230113
  Serious: Yes (Life-Threatening, Hospitalization)
  Sender: FDA-Public Use
  Company Number: A202200661-001

PATIENT
  Sex: Female

DRUGS (1)
  1. BENDAMUSTINE HYDROCHLORIDE [Suspect]
     Active Substance: BENDAMUSTINE HYDROCHLORIDE
     Indication: Follicular lymphoma
     Dosage: 45 MG/M2, APPROXIMATELY 50%
     Route: 042
     Dates: start: 20220804

REACTIONS (3)
  - Ileus [Not Recovered/Not Resolved]
  - Paraneoplastic syndrome [Not Recovered/Not Resolved]
  - Dyspnoea [Not Recovered/Not Resolved]

NARRATIVE: CASE EVENT DATE: 20220101
